FAERS Safety Report 7786432-2 (Version None)
Quarter: 2011Q3

REPORT INFORMATION
  Report Type: 
  Country: None (occurrence: None)
  Receive Date: 20110927
  Receipt Date: 20110915
  Transmission Date: 20111222
  Serious: Yes (Hospitalization)
  Sender: FDA-Public Use
  Company Number: MPS1-1000550

PATIENT
  Age: 16 Year
  Sex: Male
  Weight: 97.3 kg

DRUGS (7)
  1. VITAMIN D [Concomitant]
  2. ALDURAZYME [Suspect]
  3. GEN-SALBUTAMOL (SALBUTAMOL SULFATE) [Concomitant]
  4. ALDURAZYME [Suspect]
     Indication: MUCOPOLYSACCHARIDOSIS
     Dosage: 9500 UNITS, QW, INTRAVENOUS
     Route: 042
     Dates: start: 20110101
  5. PULMICORT [Concomitant]
  6. SINGULAIR [Concomitant]
  7. CALTRATE (VITAMIN D NOS) [Concomitant]

REACTIONS (3)
  - RESTRICTIVE PULMONARY DISEASE [None]
  - COUGH [None]
  - DYSPNOEA [None]
